FAERS Safety Report 25577866 (Version 3)
Quarter: 2025Q3

REPORT INFORMATION
  Report Type: Spontaneous
  Country: EU (occurrence: EU)
  Receive Date: 20250718
  Receipt Date: 20250818
  Transmission Date: 20251020
  Serious: Yes (Other)
  Sender: TEVA
  Company Number: EU-TEVA-VS-3352794

PATIENT
  Age: 36 Year
  Sex: Female

DRUGS (4)
  1. GLATIRAMER ACETATE [Suspect]
     Active Substance: GLATIRAMER ACETATE
     Indication: Relapsing-remitting multiple sclerosis
     Route: 058
     Dates: start: 201807, end: 202110
  2. TERIFLUNOMIDE [Suspect]
     Active Substance: TERIFLUNOMIDE
     Indication: Relapsing-remitting multiple sclerosis
     Route: 048
     Dates: start: 202110, end: 202311
  3. METHYLPREDNISOLONE [Concomitant]
     Active Substance: METHYLPREDNISOLONE
     Indication: Diplopia
     Route: 042
     Dates: start: 2018
  4. RIFAXIMIN [Concomitant]
     Active Substance: RIFAXIMIN
     Indication: Diarrhoea
     Route: 065
     Dates: start: 202309

REACTIONS (4)
  - Relapsing multiple sclerosis [Unknown]
  - Injection site reaction [Unknown]
  - Diarrhoea [Recovered/Resolved]
  - Injection site swelling [Unknown]

NARRATIVE: CASE EVENT DATE: 20180101
